FAERS Safety Report 10620982 (Version 2)
Quarter: 2014Q4

REPORT INFORMATION
  Report Type: Spontaneous
  Country: SE (occurrence: SE)
  Receive Date: 20141203
  Receipt Date: 20141203
  Transmission Date: 20150529
  Serious: Yes (Other)
  Sender: FDA-Public Use
  Company Number: SE-BAXTER-2014BAX064536

PATIENT
  Age: 44 Year
  Sex: Male
  Weight: 92 kg

DRUGS (3)
  1. HYQVIA [Suspect]
     Active Substance: HUMAN IMMUNOGLOBULIN G\HYALURONIDASE RECOMBINANT HUMAN
     Indication: OFF LABEL USE
  2. HYQVIA [Suspect]
     Active Substance: HUMAN IMMUNOGLOBULIN G\HYALURONIDASE RECOMBINANT HUMAN
     Indication: MULTIFOCAL MOTOR NEUROPATHY
     Route: 058
     Dates: start: 20140915, end: 20141022
  3. OCTAGAM IMMUNE GLOBULIN (HUMAN) [Concomitant]
     Active Substance: HUMAN IMMUNOGLOBULIN G
     Indication: MULTIFOCAL MOTOR NEUROPATHY
     Route: 065

REACTIONS (5)
  - Local swelling [Recovering/Resolving]
  - Pruritus [Recovered/Resolved]
  - Drug ineffective [Recovering/Resolving]
  - Erythema [Recovering/Resolving]
  - Injection site mass [Recovering/Resolving]

NARRATIVE: CASE EVENT DATE: 2014
